FAERS Safety Report 5746369-7 (Version None)
Quarter: 2008Q2

REPORT INFORMATION
  Report Type: 
  Country: None (occurrence: None)
  Receive Date: 20080522
  Receipt Date: 20080520
  Transmission Date: 20081010
  Serious: Yes (Hospitalization)
  Sender: FDA-Public Use
  Company Number: DE-BRISTOL-MYERS SQUIBB COMPANY-14090815

PATIENT
  Age: 47 Year
  Sex: Female
  Weight: 78 kg

DRUGS (6)
  1. ORENCIA [Suspect]
     Indication: POLYARTHRITIS
     Dosage: SECOND INFUSION :15-JAN-08.
     Route: 042
     Dates: start: 20080115, end: 20080115
  2. PREDNISOLONE [Concomitant]
     Indication: POLYARTHRITIS
     Dosage: 1DOSAGE FORM = 5(UNITS NOT SPECIFIED) (2-0-1)
     Dates: start: 20040101
  3. METHOTREXATE [Concomitant]
     Indication: POLYARTHRITIS
     Route: 058
     Dates: start: 20050101
  4. METOPROLOL TARTRATE [Concomitant]
     Indication: HYPERTENSION
  5. ENALAPRIL MALEATE [Concomitant]
     Indication: HYPERTENSION
  6. ESIDRIX [Concomitant]
     Indication: HYPERTENSION

REACTIONS (6)
  - DYSPNOEA [None]
  - FATIGUE [None]
  - FLUSHING [None]
  - HYPERHIDROSIS [None]
  - HYPERTENSION [None]
  - SINUS TACHYCARDIA [None]
